FAERS Safety Report 4493347-4 (Version None)
Quarter: 2004Q4

REPORT INFORMATION
  Report Type: 
  Country: None (occurrence: None)
  Receive Date: 20041102
  Receipt Date: 20041019
  Transmission Date: 20050328
  Serious: Yes (Hospitalization, Other)
  Sender: FDA-Public Use
  Company Number: USA-2004-0016892

PATIENT
  Sex: Male

DRUGS (3)
  1. OXYCODONE HCL [Suspect]
  2. VALIUM [Suspect]
  3. VICODIN [Suspect]

REACTIONS (3)
  - ALCOHOLISM [None]
  - CONDITION AGGRAVATED [None]
  - DRUG DETOXIFICATION [None]
